FAERS Safety Report 23172104 (Version 2)
Quarter: 2024Q3

REPORT INFORMATION
  Report Type: Spontaneous
  Country: IT (occurrence: IT)
  Receive Date: 20231110
  Receipt Date: 20240905
  Transmission Date: 20241016
  Serious: Yes (Hospitalization)
  Sender: SANDOZ
  Company Number: IT-NOVPHSZ-PHHY2018IT171301

PATIENT
  Age: 60 Year
  Sex: Male

DRUGS (10)
  1. CYTARABINE [Suspect]
     Active Substance: CYTARABINE
     Indication: Acute myeloid leukaemia
     Dosage: 2000 MG, QD
     Route: 065
     Dates: start: 2012
  2. CYTARABINE [Suspect]
     Active Substance: CYTARABINE
     Dosage: 2000 MG, QD
     Route: 065
     Dates: start: 201805
  3. FILGRASTIM [Suspect]
     Active Substance: FILGRASTIM
     Indication: Acute myeloid leukaemia
     Dosage: 2000 MG, QD
     Route: 065
     Dates: start: 2015
  4. FLUDARABINE [Suspect]
     Active Substance: FLUDARABINE PHOSPHATE
     Indication: Acute myeloid leukaemia recurrent
     Dosage: 30 MG, QD
     Route: 065
     Dates: start: 2015
  5. FLUDARABINE [Suspect]
     Active Substance: FLUDARABINE PHOSPHATE
     Indication: Bone marrow conditioning regimen
     Dosage: 40 MG, QD
     Route: 065
     Dates: start: 201805
  6. FILGRASTIM [Suspect]
     Active Substance: FILGRASTIM
     Dosage: 40 MG, QD
     Route: 065
     Dates: start: 201805
  7. FILGRASTIM [Suspect]
     Active Substance: FILGRASTIM
     Indication: Acute myeloid leukaemia
     Dosage: FROM DAY -1, UNK
     Route: 065
  8. IDARUBICIN [Suspect]
     Active Substance: IDARUBICIN
     Indication: Acute myeloid leukaemia recurrent
     Dosage: 15 MG, QD
     Route: 065
     Dates: start: 201805
  9. MITOXANTRONE [Suspect]
     Active Substance: MITOXANTRONE HYDROCHLORIDE
     Indication: Acute myeloid leukaemia recurrent
     Dosage: 7 MG/M2, UNK
     Route: 065
     Dates: start: 2015
  10. BUSULFAN [Concomitant]
     Active Substance: BUSULFAN
     Indication: Bone marrow conditioning regimen
     Dosage: UNK
     Route: 065

REACTIONS (7)
  - Bone marrow failure [Unknown]
  - Neoplasm recurrence [Unknown]
  - Acute myeloid leukaemia recurrent [Unknown]
  - Pyrexia [Unknown]
  - Pancytopenia [Unknown]
  - Cytopenia [Unknown]
  - Congenital aplasia [Unknown]

NARRATIVE: CASE EVENT DATE: 20180401
